FAERS Safety Report 24544001 (Version 2)
Quarter: 2024Q4

REPORT INFORMATION
  Report Type: Spontaneous
  Country: JP (occurrence: JP)
  Receive Date: 20241024
  Receipt Date: 20241028
  Transmission Date: 20250114
  Serious: Yes (Death, Other)
  Sender: GLAXOSMITHKLINE
  Company Number: JP-TAKEDA-2024TJP015173

PATIENT

DRUGS (1)
  1. ZEJULA [Suspect]
     Active Substance: NIRAPARIB
     Indication: Ovarian cancer
     Dosage: UNK
     Route: 048

REACTIONS (6)
  - Death [Fatal]
  - Ovarian cancer [Unknown]
  - Malignant pleural effusion [Unknown]
  - Malignant ascites [Unknown]
  - Cachexia [Unknown]
  - Respiratory disorder [Unknown]
